FAERS Safety Report 22180858 (Version 2)
Quarter: 2023Q2

REPORT INFORMATION
  Report Type: Spontaneous
  Country: JP (occurrence: JP)
  Receive Date: 20230406
  Receipt Date: 20230412
  Transmission Date: 20230721
  Serious: Yes (Hospitalization, Other)
  Sender: FDA-Public Use
  Company Number: JP-MLMSERVICE-20230323-4182171-1

PATIENT
  Age: 84 Year
  Sex: Female

DRUGS (2)
  1. LANSOPRAZOLE [Suspect]
     Active Substance: LANSOPRAZOLE
     Indication: Product used for unknown indication
     Dosage: UNK
     Route: 065
  2. ASPIRIN [Concomitant]
     Active Substance: ASPIRIN
     Dosage: UNK

REACTIONS (8)
  - Protein-losing gastroenteropathy [Recovered/Resolved]
  - Pseudomembranous colitis [Recovered/Resolved]
  - Hypoalbuminaemia [Recovered/Resolved]
  - Oedema mucosal [Recovered/Resolved]
  - Inflammation [Recovered/Resolved]
  - Oedema peripheral [Recovered/Resolved]
  - Colitis microscopic [Recovered/Resolved]
  - Diarrhoea [Recovered/Resolved]
